FAERS Safety Report 13664193 (Version 3)
Quarter: 2017Q3

REPORT INFORMATION
  Report Type: Report from Study
  Country: DE (occurrence: EG)
  Receive Date: 20170619
  Receipt Date: 20170721
  Transmission Date: 20171127
  Serious: Yes (Hospitalization)
  Sender: FDA-Public Use
  Company Number: DE-ROCHE-1947055

PATIENT
  Age: 26 Year
  Sex: Female
  Weight: 70 kg

DRUGS (12)
  1. HOGGAR N [Concomitant]
     Indication: SLEEP DISORDER
     Route: 048
  2. IBUPROFEN. [Concomitant]
     Active Substance: IBUPROFEN
     Dosage: ONCE BEFORE INFUSION
     Route: 065
     Dates: start: 20170608, end: 20170608
  3. IBUPROFEN. [Concomitant]
     Active Substance: IBUPROFEN
     Dosage: START TIME: 09:46, STOP TIME: 09:46, ONCE BEFORE INFUSION
     Route: 065
     Dates: start: 20161228, end: 20161228
  4. OCRELIZUMAB. [Suspect]
     Active Substance: OCRELIZUMAB
     Indication: RELAPSING-REMITTING MULTIPLE SCLEROSIS
     Dosage: DATE OF MOST RECENT DOSE OF OCRELIZUMAB 300 MG PRIOR TO THIS EVENT ONSET: 28/DEC/2016
     Route: 042
     Dates: start: 20161215
  5. METHYLPREDNISOLONE. [Suspect]
     Active Substance: METHYLPREDNISOLONE
     Route: 042
     Dates: start: 20170608, end: 20170608
  6. ZOPICLON [Concomitant]
     Active Substance: ZOPICLONE
     Indication: SLEEP DISORDER
     Route: 048
     Dates: start: 20161228
  7. DESLORATADIN [Concomitant]
     Active Substance: DESLORATADINE
     Dosage: START TIME: 09:46, STOP TIME: 09:46, ONCE BEFORE INFUSION
     Route: 065
     Dates: start: 20161228, end: 20161228
  8. METHYLPREDNISOLONE. [Suspect]
     Active Substance: METHYLPREDNISOLONE
     Indication: RELAPSING-REMITTING MULTIPLE SCLEROSIS
     Route: 042
     Dates: start: 20161215, end: 20161215
  9. METHYLPREDNISOLONE. [Suspect]
     Active Substance: METHYLPREDNISOLONE
     Dosage: DATE OF MOST RECENT DOSE OF 100 MG PRIOR TO THIS EVENT ONSET: 28/DEC/2016
     Route: 042
     Dates: start: 20161228, end: 20161228
  10. NOVAMINE [Concomitant]
     Active Substance: ALANINE\ARGININE\ASPARTIC ACID\GLUTAMIC ACID\GLYCINE\HISTIDINE\ISOLEUCINE\LEUCINE\LYSINE ACETATE\METHIONINE\PHENYLALANINE\PROLINE\SERINE\THREONINE\TRYPTOPHAN\TYROSINE\VALINE
     Route: 048
  11. IBUPROFEN. [Concomitant]
     Active Substance: IBUPROFEN
     Indication: TENSION HEADACHE
     Dosage: START TIME: 11:40, STOP TIME: 11:40, ONCE BEFORE INFUSION
     Route: 065
     Dates: start: 20161215, end: 20161215
  12. IBUPROFEN. [Concomitant]
     Active Substance: IBUPROFEN
     Route: 048
     Dates: start: 20161223

REACTIONS (1)
  - Gastroenteritis [Recovered/Resolved]

NARRATIVE: CASE EVENT DATE: 20170529
